FAERS Safety Report 13178448 (Version 1)
Quarter: 2017Q1

REPORT INFORMATION
  Report Type: Spontaneous
  Country: US (occurrence: US)
  Receive Date: 20170201
  Receipt Date: 20170201
  Transmission Date: 20170428
  Serious: Yes (Hospitalization, Disabling, Other)
  Sender: FDA-Public Use
  Company Number: None

PATIENT
  Age: 1 Year
  Sex: Male
  Weight: 24.75 kg

DRUGS (1)
  1. BABY TEETHING (HYLAND HOMEOPATHIC) [Suspect]
     Active Substance: HOMEOPATHICS
     Indication: TEETHING
     Dosage: 1-2/DAY AS NEEDED SUBLINGUAL
     Route: 060
     Dates: start: 20110701, end: 20120131

REACTIONS (5)
  - Generalised tonic-clonic seizure [None]
  - Febrile convulsion [None]
  - Epilepsy [None]
  - Disorientation [None]
  - Impulsive behaviour [None]

NARRATIVE: CASE EVENT DATE: 20120225
